FAERS Safety Report 24804379 (Version 1)
Quarter: 2025Q1

REPORT INFORMATION
  Report Type: Spontaneous
  Country: US (occurrence: US)
  Receive Date: 20250103
  Receipt Date: 20250103
  Transmission Date: 20250409
  Serious: Yes (Hospitalization)
  Sender: PFIZER
  Company Number: US-PFIZER INC-202400334439

PATIENT
  Age: 57 Year
  Sex: Female
  Weight: 47.6 kg

DRUGS (3)
  1. DEMEROL [Suspect]
     Active Substance: MEPERIDINE HYDROCHLORIDE
     Indication: Ehlers-Danlos syndrome
     Route: 048
     Dates: end: 20241130
  2. BACLOFEN [Concomitant]
     Active Substance: BACLOFEN
     Dosage: 10 MILLIGRAMS, 3 TIMES A DAY
  3. VALIUM [Concomitant]
     Active Substance: DIAZEPAM
     Dosage: 10 MG, 3 TIMES A DAY

REACTIONS (4)
  - Catheter placement [Unknown]
  - Off label use [Unknown]
  - Incorrect route of product administration [Unknown]
  - Product dose omission issue [Unknown]
